FAERS Safety Report 11290062 (Version 2)
Quarter: 2015Q3

REPORT INFORMATION
  Report Type: Spontaneous
  Country: US (occurrence: US)
  Receive Date: 20150721
  Receipt Date: 20150807
  Transmission Date: 20151125
  Serious: Yes (Hospitalization, Other)
  Sender: FDA-Public Use
  Company Number: US-GLAXOSMITHKLINE-US2015GSK104356

PATIENT
  Age: 71 Year
  Sex: Female

DRUGS (3)
  1. VOTRIENT [Suspect]
     Active Substance: PAZOPANIB HYDROCHLORIDE
     Indication: NEOPLASM MALIGNANT
     Dosage: 400 MG, QD
     Dates: start: 2015
  2. VOTRIENT [Suspect]
     Active Substance: PAZOPANIB HYDROCHLORIDE
     Dosage: 200 MG, U
  3. VOTRIENT [Suspect]
     Active Substance: PAZOPANIB HYDROCHLORIDE
     Indication: RENAL CANCER
     Dosage: 800 MG, QD
     Dates: start: 20141215, end: 201504

REACTIONS (9)
  - Blood pressure increased [Unknown]
  - Femur fracture [Unknown]
  - Vomiting [Unknown]
  - Lower limb fracture [Unknown]
  - Headache [Unknown]
  - Meningitis [Unknown]
  - Diarrhoea [Unknown]
  - Medical device implantation [Unknown]
  - Malaise [Unknown]

NARRATIVE: CASE EVENT DATE: 20150102
